FAERS Safety Report 9331050 (Version 2)
Quarter: 2013Q3

REPORT INFORMATION
  Report Type: Spontaneous
  Country: US (occurrence: US)
  Receive Date: 20130605
  Receipt Date: 20130702
  Transmission Date: 20140515
  Serious: Yes (Life-Threatening)
  Sender: FDA-Public Use
  Company Number: US-009507513-1306USA000331

PATIENT
  Age: 61 Year
  Sex: Female

DRUGS (3)
  1. VICTRELIS [Suspect]
     Indication: HEPATITIS C
     Dosage: 800 MG, TID
     Route: 048
     Dates: start: 20121205
  2. PEGINTRON [Suspect]
     Dosage: UNK
     Dates: start: 20121104
  3. REBETOL [Suspect]
     Dosage: UNK
     Route: 048
     Dates: start: 20121104

REACTIONS (4)
  - Anaemia [Recovered/Resolved]
  - Intercepted medication error [Unknown]
  - Transfusion [Unknown]
  - Haemoglobin abnormal [Unknown]
